FAERS Safety Report 10429315 (Version 1)
Quarter: 2014Q3

REPORT INFORMATION
  Report Type: Spontaneous
  Country: US (occurrence: None)
  Receive Date: 20140725
  Receipt Date: 20140725
  Transmission Date: 20150326
  Serious: Yes (Hospitalization)
  Sender: FDA-Public Use
  Company Number: 163-50794-13082062

PATIENT
  Age: 58 Year
  Sex: Female
  Weight: 72.58 kg

DRUGS (3)
  1. LORAZEPAM (LORAZEPAM) [Concomitant]
     Active Substance: LORAZEPAM
  2. VIDAZA [Suspect]
     Active Substance: AZACITIDINE
     Indication: MYELODYSPLASTIC SYNDROME
     Dates: start: 201108
  3. AMBIEN [Concomitant]
     Active Substance: ZOLPIDEM TARTRATE

REACTIONS (14)
  - Impatience [None]
  - Myalgia [None]
  - Mood swings [None]
  - Pruritus [None]
  - Irritability [None]
  - Anxiety [None]
  - Mental impairment [None]
  - Regurgitation [None]
  - Insomnia [None]
  - Urinary tract infection [None]
  - Headache [None]
  - Nausea [None]
  - Pyrexia [None]
  - Diarrhoea [None]

NARRATIVE: CASE EVENT DATE: 201108
